FAERS Safety Report 23593403 (Version 2)
Quarter: 2024Q1

REPORT INFORMATION
  Report Type: Spontaneous
  Country: JP (occurrence: JP)
  Receive Date: 20240304
  Receipt Date: 20240318
  Transmission Date: 20240410
  Serious: Yes (Other)
  Sender: FDA-Public Use
  Company Number: JP-BIOMARINAP-JP-2024-156242

PATIENT

DRUGS (2)
  1. SAPROPTERIN DIHYDROCHLORIDE [Suspect]
     Active Substance: SAPROPTERIN DIHYDROCHLORIDE
     Indication: Phenylketonuria
     Dosage: 600 MILLIGRAM, QD
     Route: 048
     Dates: start: 20201211
  2. PHENYLALANINE [Concomitant]
     Active Substance: PHENYLALANINE
     Indication: Phenylketonuria

REACTIONS (4)
  - Stillbirth [Recovered/Resolved]
  - Premature delivery [Recovered/Resolved]
  - Amniotic cavity infection [Unknown]
  - Maternal exposure during pregnancy [Recovered/Resolved]

NARRATIVE: CASE EVENT DATE: 20230101
